FAERS Safety Report 9543078 (Version 2)
Quarter: 2013Q4

REPORT INFORMATION
  Report Type: Spontaneous
  Country: US (occurrence: US)
  Receive Date: 20130923
  Receipt Date: 20131217
  Transmission Date: 20140711
  Serious: Yes (Other)
  Sender: FDA-Public Use
  Company Number: US-GALDERMA-US13002918

PATIENT
  Age: 41 Year
  Sex: Female

DRUGS (3)
  1. CETAPHIL GENTLE CLEANSING ANTIBACTERIAL BAR [Suspect]
     Indication: THERAPEUTIC SKIN CARE TOPICAL
     Route: 061
     Dates: start: 1993
  2. TRIPHASIL-21 [Suspect]
     Route: 048
     Dates: end: 201303
  3. BATH AND BODY WORKS ANTIMICROBIAL PUMP SOAP [Concomitant]
     Indication: THERAPEUTIC SKIN CARE TOPICAL
     Route: 061

REACTIONS (2)
  - Pulmonary thrombosis [Recovered/Resolved]
  - Thrombosis [Recovered/Resolved]
